FAERS Safety Report 9382876 (Version 1)
Quarter: 2013Q3

REPORT INFORMATION
  Report Type: Spontaneous
  Country: AU (occurrence: AU)
  Receive Date: 20130703
  Receipt Date: 20130703
  Transmission Date: 20140515
  Serious: Yes (Other)
  Sender: FDA-Public Use
  Company Number: AU-BAXTER-2013BAX024573

PATIENT
  Sex: Female

DRUGS (2)
  1. BAXTER 5% GLUCOSE 25G_500ML INJECTION BP BAG AHB0063 [Suspect]
     Indication: MEDICATION DILUTION
     Route: 042
  2. OXALIPLATIN [Suspect]
     Indication: CHEMOTHERAPY
     Dosage: 104 MG/20.8 ML
     Route: 042

REACTIONS (1)
  - Rash [Unknown]
